FAERS Safety Report 8995573 (Version 1)
Quarter: 2013Q1

REPORT INFORMATION
  Report Type: Spontaneous
  Country: US (occurrence: US)
  Receive Date: 20130103
  Receipt Date: 20130103
  Transmission Date: 20140127
  Serious: No
  Sender: FDA-Public Use
  Company Number: US-ABBOTT-12P-163-0952617-00

PATIENT
  Sex: Female
  Weight: 76.27 kg

DRUGS (5)
  1. SYNTHROID [Suspect]
     Indication: HYPOTHYROIDISM
     Dates: start: 2007
  2. ASPIRIN [Concomitant]
     Indication: CARDIAC DISORDER
  3. LISINOPRIL [Concomitant]
     Indication: HYPERTENSION
  4. TRIAMTERENE [Concomitant]
     Indication: HYPERTENSION
  5. OXAZEPAM [Concomitant]
     Indication: MUSCLE RELAXANT THERAPY

REACTIONS (2)
  - Neck pain [Not Recovered/Not Resolved]
  - Muscle tightness [Not Recovered/Not Resolved]
